FAERS Safety Report 6997299-4 (Version None)
Quarter: 2010Q3

REPORT INFORMATION
  Report Type: 
  Country: None (occurrence: None)
  Receive Date: 20100918
  Receipt Date: 20090922
  Transmission Date: 20110219
  Serious: No
  Sender: FDA-Public Use
  Company Number: US-WYE-H11156009

PATIENT
  Sex: Male
  Weight: 108.96 kg

DRUGS (3)
  1. PRISTIQ [Suspect]
     Indication: DEPRESSION
     Route: 048
     Dates: start: 20090918
  2. NEXIUM [Concomitant]
  3. TAMSULOSIN HYDROCHLORIDE [Concomitant]

REACTIONS (3)
  - ANORGASMIA [None]
  - EJACULATION FAILURE [None]
  - SLEEP DISORDER [None]
